FAERS Safety Report 9597585 (Version 1)
Quarter: 2013Q4

REPORT INFORMATION
  Report Type: Spontaneous
  Country: US (occurrence: US)
  Receive Date: 20131004
  Receipt Date: 20131004
  Transmission Date: 20140711
  Serious: No
  Sender: FDA-Public Use
  Company Number: US-AMGEN-USASP2013019614

PATIENT
  Age: 60 Year
  Sex: Female

DRUGS (12)
  1. ENBREL [Suspect]
     Indication: RHEUMATOID ARTHRITIS
     Dosage: 50 MG, QWK
     Route: 058
  2. METHOTREXATE [Concomitant]
     Dosage: 2.5 MG, UNK
  3. EXFORGE [Concomitant]
     Dosage: 10 - 160 MG, UNK
  4. ATENOLOL [Concomitant]
     Dosage: 25 MG, UNK
  5. SIMVASTATIN [Concomitant]
     Dosage: 40 MG, UNK
  6. VITAMIN D                          /00107901/ [Concomitant]
     Dosage: 50000 UNIT, UNK
  7. FOLGARD [Concomitant]
     Dosage: UNK
  8. DEXILANT [Concomitant]
     Dosage: 30 MG, UNK
  9. CO Q 10                            /00517201/ [Concomitant]
     Dosage: 10 MG, UNK
  10. TURMERIC                           /01079602/ [Concomitant]
     Dosage: UNK
  11. CURCUMIN [Concomitant]
     Dosage: UNK
  12. ASPIRIN [Concomitant]
     Dosage: 81 MG, UNK

REACTIONS (1)
  - Increased tendency to bruise [Unknown]
